FAERS Safety Report 17982049 (Version 1)
Quarter: 2020Q3

REPORT INFORMATION
  Report Type: Spontaneous
  Country: US (occurrence: US)
  Receive Date: 20200701
  Receipt Date: 20200701
  Transmission Date: 20201103
  Serious: No
  Sender: FDA-Public Use
  Company Number: None

PATIENT
  Age: 70 Year
  Sex: Female
  Weight: 69.85 kg

DRUGS (11)
  1. ALDACTONE [Suspect]
     Active Substance: SPIRONOLACTONE
     Indication: CARDIAC OPERATION
     Dosage: ?          QUANTITY:1 DF DOSAGE FORM;?
     Route: 048
     Dates: start: 201205, end: 20200606
  2. ASPIRIN. [Concomitant]
     Active Substance: ASPIRIN
  3. COQ10 [Concomitant]
     Active Substance: UBIDECARENONE
  4. VITAMIN D3 [Concomitant]
     Active Substance: CHOLECALCIFEROL
  5. METFORMIN [Concomitant]
     Active Substance: METFORMIN HYDROCHLORIDE
  6. PREMARIN VAG CREME [Concomitant]
  7. MELOXICAM. [Concomitant]
     Active Substance: MELOXICAM
  8. TRICINOMALONE CREME [Concomitant]
  9. METOPROLOL (TOPROL XL EQ) [Concomitant]
  10. SIMVASTATIN. [Concomitant]
     Active Substance: SIMVASTATIN
  11. CLOPIDOGREL [Concomitant]
     Active Substance: CLOPIDOGREL BISULFATE

REACTIONS (5)
  - Dysuria [None]
  - Rash [None]
  - Pruritus [None]
  - Vulvovaginal pruritus [None]
  - Vaginal infection [None]

NARRATIVE: CASE EVENT DATE: 202005
